FAERS Safety Report 6550797-X (Version None)
Quarter: 2010Q1

REPORT INFORMATION
  Report Type: 
  Country: None (occurrence: None)
  Receive Date: 20100125
  Receipt Date: 20100111
  Transmission Date: 20100710
  Serious: Yes (Hospitalization)
  Sender: FDA-Public Use
  Company Number: US-WATSON-2010-00620

PATIENT
  Age: 34 Year
  Sex: Female

DRUGS (4)
  1. MIRTAZAPINE [Suspect]
     Indication: MAJOR DEPRESSION
  2. METHYLENE BLUE [Suspect]
     Indication: PARATHYROIDECTOMY
  3. VENLAFAXINE [Suspect]
     Indication: DEPRESSION
  4. QUETIAPINE [Suspect]

REACTIONS (2)
  - ENCEPHALOPATHY [None]
  - INHIBITORY DRUG INTERACTION [None]
